FAERS Safety Report 8298870-2 (Version None)
Quarter: 2012Q2

REPORT INFORMATION
  Report Type: 
  Country: None (occurrence: None)
  Receive Date: 20120419
  Receipt Date: 20120410
  Transmission Date: 20120825
  Serious: Yes (Other)
  Sender: FDA-Public Use
  Company Number: FR-TEVA-333219ISR

PATIENT
  Sex: Female

DRUGS (2)
  1. COPAXONE [Suspect]
     Dates: end: 20110101
  2. COPAXONE [Suspect]
     Dates: start: 20120201

REACTIONS (1)
  - PREMATURE LABOUR [None]
